FAERS Safety Report 9262740 (Version 1)
Quarter: 2013Q2

REPORT INFORMATION
  Report Type: Spontaneous
  Country: US (occurrence: None)
  Receive Date: 20130426
  Receipt Date: 20130426
  Transmission Date: 20140414
  Serious: Yes (Hospitalization)
  Sender: FDA-Public Use
  Company Number: None

PATIENT
  Age: 57 Year
  Sex: Female
  Weight: 126 kg

DRUGS (1)
  1. EVEROLIMUS (AFINITOR, RAD-001) [Suspect]
     Dates: end: 20130422

REACTIONS (4)
  - Cellulitis [None]
  - Diabetic ulcer [None]
  - Skin ulcer [None]
  - Anaemia [None]
